FAERS Safety Report 9224856 (Version 1)
Quarter: 2013Q2

REPORT INFORMATION
  Report Type: Spontaneous
  Country: US (occurrence: None)
  Receive Date: 20130409
  Receipt Date: 20130409
  Transmission Date: 20140414
  Serious: Yes (Other)
  Sender: FDA-Public Use
  Company Number: None

PATIENT
  Age: 0 Day
  Sex: Female

DRUGS (2)
  1. LUPRON DEPOT [Suspect]
     Dosage: 3.75MG ONCE A MONTH INTRA MUSCULAR
     Route: 030
     Dates: start: 20121106, end: 20130216
  2. LUPRON DEPOT [Suspect]
     Dosage: 3.75MG ONCE A MONTH INTRA MUSCULAR
     Route: 030
     Dates: start: 20121106, end: 20130216

REACTIONS (1)
  - Hepatomegaly [None]
